FAERS Safety Report 8050952-6 (Version None)
Quarter: 2012Q1

REPORT INFORMATION
  Report Type: 
  Country: None (occurrence: None)
  Receive Date: 20120117
  Receipt Date: 20120110
  Transmission Date: 20120608
  Serious: Yes (Other)
  Sender: FDA-Public Use
  Company Number: PHHY2012FR002613

PATIENT
  Age: 85 Year
  Sex: Female

DRUGS (3)
  1. ONBREZ [Suspect]
     Indication: EMPHYSEMA
     Dosage: 150 UG, QD
     Dates: start: 20111101
  2. OXYGEN [Concomitant]
  3. ONBREZ [Suspect]
     Dosage: 300 UG, UNK

REACTIONS (3)
  - LIP OEDEMA [None]
  - DRY MOUTH [None]
  - LIP DISCOLOURATION [None]
